FAERS Safety Report 8371263-5 (Version None)
Quarter: 2012Q2

REPORT INFORMATION
  Report Type: 
  Country: None (occurrence: None)
  Receive Date: 20120518
  Receipt Date: 20120509
  Transmission Date: 20120825
  Serious: Yes (Hospitalization)
  Sender: FDA-Public Use
  Company Number: JP-VERTEX PHARMACEUTICALS INC.-AE-2012-007086

PATIENT
  Age: 68 Year
  Sex: Female

DRUGS (4)
  1. PEG-INTRON [Concomitant]
     Route: 051
     Dates: start: 20120314, end: 20120430
  2. TELAVIC (TELAPREVIR) [Suspect]
     Indication: HEPATITIS C
     Route: 048
     Dates: start: 20120314, end: 20120430
  3. RIBAVIRIN [Concomitant]
     Route: 048
     Dates: start: 20120314, end: 20120411
  4. RIBAVIRIN [Concomitant]
     Route: 048
     Dates: start: 20120412, end: 20120430

REACTIONS (1)
  - RASH [None]
